FAERS Safety Report 25210138 (Version 3)
Quarter: 2025Q2

REPORT INFORMATION
  Report Type: Spontaneous
  Country: DE (occurrence: DE)
  Receive Date: 20250417
  Receipt Date: 20250613
  Transmission Date: 20250717
  Serious: Yes (Life-Threatening, Other)
  Sender: NOVARTIS
  Company Number: DE-002147023-NVSC2025DE033349

PATIENT
  Age: 33 Year
  Sex: Female
  Weight: 62 kg

DRUGS (1)
  1. KESIMPTA [Suspect]
     Active Substance: OFATUMUMAB
     Indication: Multiple sclerosis
     Route: 065
     Dates: start: 20241106

REACTIONS (8)
  - Malignant melanoma [Recovered/Resolved]
  - Nausea [Recovered/Resolved]
  - Fructose intolerance [Recovered/Resolved]
  - Lactose intolerance [Recovered/Resolved]
  - Drug intolerance [Recovered/Resolved]
  - Weight decreased [Recovering/Resolving]
  - Gastrointestinal disorder [Recovered/Resolved]
  - Flushing [Recovered/Resolved]

NARRATIVE: CASE EVENT DATE: 20241109
